FAERS Safety Report 10219264 (Version 1)
Quarter: 2014Q2

REPORT INFORMATION
  Report Type: Spontaneous
  Country: GB (occurrence: None)
  Receive Date: 20140603
  Receipt Date: 20140603
  Transmission Date: 20141212
  Serious: Yes (Life-Threatening, Other)
  Sender: FDA-Public Use
  Company Number: 2014GB00502

PATIENT
  Age: 60 Year
  Sex: Female

DRUGS (6)
  1. GEMCITABINE (GEMCITABINE) INJECTION [Suspect]
     Indication: LYMPHADENOPATHY
     Dosage: 1G PER M2 ON DAY 1,8, AND 15 OF A 28 DAY CYCLE
  2. GEMCITABINE (GEMCITABINE) INJECTION [Suspect]
     Indication: UTERINE LEIOMYOSARCOMA
     Dosage: 1G PER M2 ON DAY 1,8, AND 15 OF A 28 DAY CYCLE
  3. GRANULOCYTE COLONY-STIMULATING FACTOR NOS [Concomitant]
  4. ACICLOVIR [Concomitant]
  5. CO-TRIMOXAZOLE [Concomitant]
  6. FLUCONAZOLE [Concomitant]

REACTIONS (1)
  - Vasculitis [None]
